FAERS Safety Report 5692557-8 (Version None)
Quarter: 2008Q2

REPORT INFORMATION
  Report Type: 
  Country: None (occurrence: None)
  Receive Date: 20080401
  Receipt Date: 20080326
  Transmission Date: 20081010
  Serious: Yes (Other)
  Sender: FDA-Public Use
  Company Number: 2007BI017737

PATIENT
  Age: 60 Year
  Sex: Female
  Weight: 68.4932 kg

DRUGS (5)
  1. TYSABRI [Suspect]
     Indication: MULTIPLE SCLEROSIS
     Dosage: 300 MG,QM;IV
     Route: 042
     Dates: start: 20070608, end: 20070803
  2. SYNTHROID [Concomitant]
  3. DITROPAN [Concomitant]
  4. MOTRIN [Concomitant]
  5. VITAMIN B COMPLEX CAP [Concomitant]

REACTIONS (3)
  - CHRONIC LYMPHOCYTIC LEUKAEMIA [None]
  - EARLY SATIETY [None]
  - PLATELET COUNT DECREASED [None]
